FAERS Safety Report 7267967-8 (Version None)
Quarter: 2011Q1

REPORT INFORMATION
  Report Type: 
  Country: None (occurrence: None)
  Receive Date: 20110201
  Receipt Date: 20110127
  Transmission Date: 20110831
  Serious: Yes (Other)
  Sender: FDA-Public Use
  Company Number: US-PFIZER INC-2010054467

PATIENT
  Sex: Female
  Weight: 49 kg

DRUGS (5)
  1. PROVERA [Suspect]
     Indication: HOT FLUSH
     Dosage: UNK
     Route: 048
     Dates: end: 19970101
  2. PREMARIN [Suspect]
     Indication: HOT FLUSH
     Dosage: UNK
     Route: 048
     Dates: end: 19970101
  3. EFFEXOR [Suspect]
     Route: 048
  4. NEURONTIN [Suspect]
  5. XANAX [Suspect]

REACTIONS (7)
  - UTERINE PROLAPSE [None]
  - BREAST CANCER METASTATIC [None]
  - RIB FRACTURE [None]
  - RENAL CYST [None]
  - BLADDER PROLAPSE [None]
  - BLOOD URINE PRESENT [None]
  - WEIGHT INCREASED [None]
